FAERS Safety Report 7777599-0 (Version None)
Quarter: 2011Q3

REPORT INFORMATION
  Report Type: 
  Country: None (occurrence: None)
  Receive Date: 20110926
  Receipt Date: 20110921
  Transmission Date: 20111222
  Serious: Yes (Hospitalization, Other)
  Sender: FDA-Public Use
  Company Number: US-VERTEX PHARMACEUTICALS INC.-AE-2011-000573

PATIENT
  Age: 65 Year
  Sex: Male
  Weight: 68.1 kg

DRUGS (9)
  1. PEGASYS [Concomitant]
     Route: 058
     Dates: start: 20110101
  2. INCIVEK [Suspect]
     Indication: HEPATITIS C
     Route: 048
     Dates: start: 20110722
  3. PANTAPRAZOLE [Concomitant]
     Route: 048
  4. CENTRUM SILVER [Concomitant]
     Route: 048
  5. PEGASYS [Concomitant]
     Route: 058
     Dates: start: 20110101
  6. BUMETANIDE [Concomitant]
     Route: 048
  7. PEGASYS [Concomitant]
     Indication: HEPATITIS C
     Route: 058
     Dates: start: 20110722
  8. RIBASPHERE [Concomitant]
     Indication: HEPATITIS C
     Route: 048
     Dates: start: 20110722
  9. POTASSIUM CHLORIDE [Concomitant]
     Route: 048

REACTIONS (9)
  - DIZZINESS [None]
  - ABDOMINAL PAIN [None]
  - DRY MOUTH [None]
  - NEUTROPENIA [None]
  - SYNCOPE [None]
  - VOMITING [None]
  - AGEUSIA [None]
  - ANAEMIA [None]
  - NAUSEA [None]
